FAERS Safety Report 5145609-5 (Version None)
Quarter: 2006Q4

REPORT INFORMATION
  Report Type: 
  Country: None (occurrence: None)
  Receive Date: 20061102
  Receipt Date: 20061020
  Transmission Date: 20070319
  Serious: Yes (Hospitalization)
  Sender: FDA-Public Use
  Company Number: 14923

PATIENT
  Age: 12 Year
  Sex: Male
  Weight: 75 kg

DRUGS (1)
  1. CARBOPLATIN [Suspect]
     Indication: ASTROCYTOMA
     Dosage: 950 MG PER_CYCLE IV
     Route: 042

REACTIONS (3)
  - DRUG HYPERSENSITIVITY [None]
  - HEART RATE INCREASED [None]
  - TINNITUS [None]
